FAERS Safety Report 10009657 (Version 2)
Quarter: 2014Q1

REPORT INFORMATION
  Report Type: Spontaneous
  Country: US (occurrence: US)
  Receive Date: 20140312
  Receipt Date: 20140312
  Transmission Date: 20141002
  Serious: Yes (Other)
  Sender: FDA-Public Use
  Company Number: US-INCYTE CORPORATION-2012IN002346

PATIENT
  Age: 68 Year
  Sex: Female
  Weight: 56 kg

DRUGS (6)
  1. JAKAFI [Suspect]
     Indication: MYELOFIBROSIS
     Dosage: 5 MG, QD
     Route: 048
     Dates: start: 20121010, end: 20121030
  2. JAKAFI [Suspect]
     Indication: SPLENOMEGALY
  3. METOPROLOL [Concomitant]
     Dosage: 50 MG, BID
  4. LISINOPRIL [Concomitant]
     Dosage: 10 MG, QD
  5. HCTZ [Concomitant]
     Dosage: 12.5 MG, QOD
  6. LEVOTHYROXINE [Concomitant]
     Dosage: UNK, QD

REACTIONS (1)
  - Platelet count decreased [Recovered/Resolved]
